FAERS Safety Report 7594554-4 (Version None)
Quarter: 2011Q2

REPORT INFORMATION
  Report Type: 
  Country: None (occurrence: None)
  Receive Date: 20110628
  Receipt Date: 20110613
  Transmission Date: 20111010
  Serious: Yes (Other)
  Sender: FDA-Public Use
  Company Number: 2011P1007141

PATIENT
  Age: 50 Year
  Sex: Male
  Weight: 107.9561 kg

DRUGS (3)
  1. CLONAZEPAM [Concomitant]
  2. GLYBURIDE [Suspect]
     Indication: TYPE 2 DIABETES MELLITUS
     Dosage: 2.5 MG, BID, PO
     Route: 048
     Dates: start: 20090101
  3. METFORMIN HCL [Concomitant]

REACTIONS (6)
  - THROAT CANCER [None]
  - PRODUCT LABEL ON WRONG PRODUCT [None]
  - APHAGIA [None]
  - PRODUCT QUALITY ISSUE [None]
  - BLOOD GLUCOSE INCREASED [None]
  - NAUSEA [None]
